FAERS Safety Report 13142230 (Version 5)
Quarter: 2019Q1

REPORT INFORMATION
  Report Type: Report from Study
  Country: CA (occurrence: CA)
  Receive Date: 20170124
  Receipt Date: 20190116
  Transmission Date: 20190417
  Serious: Yes (Hospitalization)
  Sender: FDA-Public Use
  Company Number: CA-TAKEDA-2017TUS001307

PATIENT
  Age: 64 Year
  Sex: Male
  Weight: 122.45 kg

DRUGS (29)
  1. MEZAVANT [Concomitant]
     Active Substance: MESALAMINE
     Dosage: 1200 MG, QD
     Dates: start: 20140613, end: 20170330
  2. PRO RAMIPRIL [Concomitant]
     Dosage: UNK
  3. HYDROMORPHONE [Concomitant]
     Active Substance: HYDROMORPHONE
     Dosage: UNK
  4. RIVASA [Concomitant]
     Active Substance: ASPIRIN
     Indication: ANTICOAGULANT THERAPY
     Dosage: 80 MG, UNK
     Dates: start: 20160705, end: 20170508
  5. PRO-BISOPROLOL [Concomitant]
     Dosage: 10 MG, UNK
  6. OXAZEPAM. [Concomitant]
     Active Substance: OXAZEPAM
     Dosage: 15 MG, UNK
     Dates: start: 20160705, end: 20160830
  7. FUROSEMIDE TEVA [Concomitant]
     Active Substance: FUROSEMIDE
     Dosage: 80 MG, BID
  8. PREGABALIN. [Concomitant]
     Active Substance: PREGABALIN
     Dosage: 50 MG, QD
     Dates: start: 20160705, end: 20170508
  9. ACETYLSALICYLIC ACID [Concomitant]
     Active Substance: ASPIRIN
     Dosage: 80 MG, UNK
  10. SPIRONOLACTONE TEVA [Concomitant]
     Active Substance: SPIRONOLACTONE
     Dosage: 25 MG, QD
     Dates: start: 20160705, end: 20170508
  11. VITAMIN D [Concomitant]
     Active Substance: CHOLECALCIFEROL
     Dosage: UNK
  12. DOCUSATE SODIUM. [Concomitant]
     Active Substance: DOCUSATE SODIUM
     Dosage: 200 MG, BID
     Dates: start: 20160705, end: 20160801
  13. VEDOLIZUMAB [Suspect]
     Active Substance: VEDOLIZUMAB
     Indication: ENTEROCOLITIS
     Dosage: 300 MG, UNK
     Route: 042
  14. ALENDRONATE [Concomitant]
     Active Substance: ALENDRONATE SODIUM
     Dosage: 70 MG, 1/WEEK
     Dates: start: 20160705, end: 20170508
  15. ATORVASTATIN [Concomitant]
     Active Substance: ATORVASTATIN
     Dosage: 20 MG, QD
     Dates: start: 20160705, end: 20170508
  16. VITAMIN B 12 NOS [Concomitant]
     Dosage: 1200 ?G, QD
     Dates: start: 20160705, end: 20170508
  17. PANTOPRAZOLE [Concomitant]
     Active Substance: PANTOPRAZOLE
     Dosage: 40 MG, UNK
     Dates: start: 20161221, end: 20170508
  18. VITAMIN D3 [Concomitant]
     Active Substance: CHOLECALCIFEROL
     Dosage: 10000 IU, 1/WEEK
     Dates: start: 20161221, end: 20170508
  19. TEVA RAMIPRIL [Concomitant]
     Dosage: 2.5 MG, QD
     Dates: start: 20170404, end: 20170508
  20. SPIRIVA [Concomitant]
     Active Substance: TIOTROPIUM BROMIDE MONOHYDRATE
     Dosage: 18 ?G, QD
     Dates: start: 20160705, end: 20170502
  21. CALCIUM CARBONATE. [Concomitant]
     Active Substance: CALCIUM CARBONATE
     Dosage: 500 MG, QD
     Dates: start: 20161221, end: 20170508
  22. NITROSPRAY [Concomitant]
     Active Substance: NITROGLYCERIN
     Dosage: UNK
  23. PREDNISONE. [Concomitant]
     Active Substance: PREDNISONE
     Dosage: 15 MG, UNK
  24. LOPRESSOR [Concomitant]
     Active Substance: METOPROLOL TARTRATE
     Indication: BLOOD PRESSURE ABNORMAL
     Dosage: UNK
     Dates: start: 2017
  25. VEDOLIZUMAB [Suspect]
     Active Substance: VEDOLIZUMAB
     Indication: CROHN^S DISEASE
     Dosage: 300 MG, UNK
     Route: 042
     Dates: start: 20161116
  26. ADVAIR HFA [Concomitant]
     Active Substance: FLUTICASONE PROPIONATE\SALMETEROL XINAFOATE
     Dosage: UNK, BID
     Dates: start: 20160705, end: 20170223
  27. FUROSEMIDE TEVA [Concomitant]
     Active Substance: FUROSEMIDE
     Dosage: 20 MG, QD
     Dates: start: 20160927, end: 20170508
  28. TRAMADOL ACET [Concomitant]
     Indication: PAIN
     Dosage: UNK
     Dates: end: 20170523
  29. ACETAMINOPHEN. [Concomitant]
     Active Substance: ACETAMINOPHEN
     Dosage: 325 MG, QID
     Dates: start: 20160705, end: 20160830

REACTIONS (5)
  - Nasopharyngitis [Recovering/Resolving]
  - Cellulitis [Recovered/Resolved]
  - Blood pressure inadequately controlled [Unknown]
  - Influenza [Unknown]
  - Wound [Unknown]

NARRATIVE: CASE EVENT DATE: 201612
